FAERS Safety Report 16889276 (Version 1)
Quarter: 2019Q4

REPORT INFORMATION
  Report Type: Spontaneous
  Country: US (occurrence: US)
  Receive Date: 20190809
  Receipt Date: 20190809
  Transmission Date: 20200122
  Serious: Yes (Hospitalization)
  Sender: FDA-Public Use
  Company Number: None

PATIENT
  Age: 65 Year
  Sex: Male
  Weight: 74.9 kg

DRUGS (1)
  1. NALOXEGOL OXALATE. [Suspect]
     Active Substance: NALOXEGOL OXALATE
     Dates: end: 20190728

REACTIONS (4)
  - Anaemia [None]
  - Asthenia [None]
  - Sinus tachycardia [None]
  - Dyspnoea [None]

NARRATIVE: CASE EVENT DATE: 20190729
